FAERS Safety Report 6630910-6 (Version None)
Quarter: 2010Q1

REPORT INFORMATION
  Report Type: 
  Country: None (occurrence: None)
  Receive Date: 20100311
  Receipt Date: 20100301
  Transmission Date: 20100710
  Serious: Yes (Hospitalization)
  Sender: FDA-Public Use
  Company Number: FR-ELI_LILLY_AND_COMPANY-FR201003000035

PATIENT
  Sex: Female

DRUGS (11)
  1. ZYPREXA [Suspect]
     Indication: BRIEF PSYCHOTIC DISORDER, WITH POSTPARTUM ONSET
     Dosage: UNK, UNK
     Route: 048
     Dates: start: 20090801, end: 20090101
  2. ZYPREXA [Suspect]
     Dosage: UNK, UNK
     Route: 048
     Dates: start: 20090101, end: 20090101
  3. ZYPREXA [Suspect]
     Dosage: UNK, UNK
     Route: 048
     Dates: start: 20091101
  4. SEROPLEX [Concomitant]
     Indication: BRIEF PSYCHOTIC DISORDER, WITH POSTPARTUM ONSET
     Dosage: UNK, UNK
     Dates: start: 20090801, end: 20090101
  5. SEROPLEX [Concomitant]
     Dosage: UNK, UNK
     Dates: start: 20090101, end: 20090101
  6. SEROPLEX [Concomitant]
     Dosage: UNK, UNK
     Dates: start: 20091101
  7. SERESTA [Concomitant]
     Indication: BRIEF PSYCHOTIC DISORDER, WITH POSTPARTUM ONSET
     Dosage: UNK, UNK
     Dates: start: 20090801, end: 20090101
  8. SERESTA [Concomitant]
     Dosage: UNK, UNK
     Dates: start: 20090101, end: 20090101
  9. SERESTA [Concomitant]
     Dosage: UNK, UNK
     Dates: start: 20091101
  10. COMBIVIR [Concomitant]
     Indication: HIV INFECTION
  11. KALETRA [Concomitant]
     Indication: HIV INFECTION

REACTIONS (1)
  - NEUTROPENIA [None]
